FAERS Safety Report 8518274 (Version 3)
Quarter: 2012Q4

REPORT INFORMATION
  Report Type: 
  Country: US (occurrence: US)
  Receive Date: 20120417
  Receipt Date: 20121129
  Transmission Date: 20130627
  Serious: Yes (Hospitalization)
  Sender: FDA-Public Use
  Company Number: US-ASTRAZENECA-2011SE48980

PATIENT
  Age: 73 Year
  Sex: Female

DRUGS (3)
  1. NEXIUM [Suspect]
     Route: 048
  2. TOPROL XL [Suspect]
     Route: 048
  3. PRILOSEC [Suspect]
     Route: 048

REACTIONS (11)
  - Dehydration [Unknown]
  - Vomiting [Unknown]
  - Malaise [Unknown]
  - Ulcer [Unknown]
  - Liver disorder [Unknown]
  - Renal disorder [Unknown]
  - Large intestinal ulcer [Unknown]
  - Gastric ulcer [Unknown]
  - Blood potassium decreased [Unknown]
  - Skin ulcer [Unknown]
  - Drug dose omission [Unknown]
